FAERS Safety Report 16288418 (Version 1)
Quarter: 2019Q2

REPORT INFORMATION
  Report Type: Report from Study
  Country: US (occurrence: US)
  Receive Date: 20190509
  Receipt Date: 20190509
  Transmission Date: 20190711
  Serious: Yes (Other)
  Sender: FDA-Public Use
  Company Number: US-ROCHE-1972690

PATIENT
  Sex: Female

DRUGS (4)
  1. CAPECITABINE. [Suspect]
     Active Substance: CAPECITABINE
     Indication: HER-2 POSITIVE BREAST CANCER
     Dosage: 14 DAYS FOLLOWED BY 7 DAYS OFF
     Route: 048
  2. NERATINIB [Suspect]
     Active Substance: NERATINIB
     Indication: HER-2 POSITIVE BREAST CANCER
     Route: 048
  3. NERATINIB [Suspect]
     Active Substance: NERATINIB
     Indication: METASTASES TO CENTRAL NERVOUS SYSTEM
  4. CAPECITABINE. [Suspect]
     Active Substance: CAPECITABINE
     Indication: METASTASES TO CENTRAL NERVOUS SYSTEM

REACTIONS (16)
  - Rash [Unknown]
  - Gait disturbance [Unknown]
  - Diarrhoea [Unknown]
  - Vomiting [Unknown]
  - Acute kidney injury [Unknown]
  - Hypophosphataemia [Unknown]
  - Dizziness [Unknown]
  - Fatigue [Unknown]
  - Dehydration [Unknown]
  - Hypokalaemia [Unknown]
  - Myalgia [Unknown]
  - Febrile neutropenia [Unknown]
  - Decreased appetite [Unknown]
  - Blood bilirubin increased [Unknown]
  - Neutropenia [Unknown]
  - Nausea [Unknown]
